FAERS Safety Report 25805042 (Version 1)
Quarter: 2025Q3

REPORT INFORMATION
  Report Type: Spontaneous
  Country: US (occurrence: US)
  Receive Date: 20250916
  Receipt Date: 20250916
  Transmission Date: 20251020
  Serious: No
  Sender: ROCHE
  Company Number: US-ROCHE-10000383352

PATIENT
  Sex: Female

DRUGS (14)
  1. ACTEMRA ACTPEN [Suspect]
     Active Substance: TOCILIZUMAB
     Indication: Rheumatoid arthritis
     Route: 058
     Dates: start: 20250904
  2. AZATHIOPRINE [Concomitant]
     Active Substance: AZATHIOPRINE
  3. HYDROCODONE [Concomitant]
     Active Substance: HYDROCODONE
  4. BIOTIN [Concomitant]
     Active Substance: BIOTIN
  5. IRON [Concomitant]
     Active Substance: IRON
  6. MAGNESIUM [Concomitant]
     Active Substance: MAGNESIUM
  7. METHYLPREDNI [Concomitant]
  8. MODAFINIL [Concomitant]
     Active Substance: MODAFINIL
  9. OMEPRAZOLE [Concomitant]
     Active Substance: OMEPRAZOLE
  10. ONDANSETRON [Concomitant]
     Active Substance: ONDANSETRON
  11. DIETARY SUPPLEMENT [Concomitant]
     Active Substance: DIETARY SUPPLEMENT
  12. TIZANIDINE [Concomitant]
     Active Substance: TIZANIDINE
  13. TRAZODONE [Concomitant]
     Active Substance: TRAZODONE HYDROCHLORIDE
  14. VITAMIN C [Concomitant]
     Active Substance: ASCORBIC ACID

REACTIONS (3)
  - Injection site mass [Not Recovered/Not Resolved]
  - Injection site bruising [Not Recovered/Not Resolved]
  - Injection site pain [Not Recovered/Not Resolved]
